FAERS Safety Report 6020697-2 (Version None)
Quarter: 2008Q4

REPORT INFORMATION
  Report Type: 
  Country: None (occurrence: None)
  Receive Date: 20081223
  Receipt Date: 20081223
  Transmission Date: 20090506
  Serious: Yes (Life-Threatening)
  Sender: FDA-Public Use
  Company Number: None

PATIENT
  Age: 35 Year
  Sex: Male
  Weight: 114 kg

DRUGS (5)
  1. LAMOTRIGINE [Suspect]
     Indication: AFFECTIVE DISORDER
     Dosage: 150 MG DAILY PO/047 4-6 MONTH
     Route: 048
  2. TRUVADA [Concomitant]
  3. REYTAZ [Concomitant]
  4. PROZAC [Concomitant]
  5. NORV [Concomitant]

REACTIONS (2)
  - PRODUCT QUALITY ISSUE [None]
  - STEVENS-JOHNSON SYNDROME [None]
